FAERS Safety Report 9937117 (Version 4)
Quarter: 2021Q1

REPORT INFORMATION
  Report Type: Other
  Country: BR (occurrence: BR)
  Receive Date: 20140301
  Receipt Date: 20210204
  Transmission Date: 20210420
  Serious: Yes (Hospitalization, Other)
  Sender: FDA-Public Use
  Company Number: BR-ROCHE-1356586

PATIENT
  Sex: Female
  Weight: 75 kg

DRUGS (6)
  1. MABTHERA [Suspect]
     Active Substance: RITUXIMAB
     Route: 042
     Dates: start: 20121009
  2. MABTHERA [Suspect]
     Active Substance: RITUXIMAB
     Route: 042
     Dates: start: 20160609
  3. PREDNISONE. [Concomitant]
     Active Substance: PREDNISONE
     Indication: RHEUMATOID ARTHRITIS
  4. METHOTREXATE. [Concomitant]
     Active Substance: METHOTREXATE
     Indication: RHEUMATOID ARTHRITIS
  5. BACTRIM [Suspect]
     Active Substance: SULFAMETHOXAZOLE\TRIMETHOPRIM
     Indication: PRODUCT USED FOR UNKNOWN INDICATION
     Route: 065
  6. MABTHERA [Suspect]
     Active Substance: RITUXIMAB
     Indication: RHEUMATOID ARTHRITIS
     Dosage: PATIENT^S LATEST INFUSION WAS ON 18/JAN/2017.
     Route: 042
     Dates: start: 201209

REACTIONS (5)
  - Gastrointestinal disorder [Unknown]
  - Arthropathy [Recovering/Resolving]
  - Sinusitis [Recovered/Resolved]
  - Drug hypersensitivity [Unknown]
  - Urinary tract infection [Not Recovered/Not Resolved]
